FAERS Safety Report 17956141 (Version 7)
Quarter: 2023Q2

REPORT INFORMATION
  Report Type: Spontaneous
  Country: US (occurrence: US)
  Receive Date: 20200629
  Receipt Date: 20230526
  Transmission Date: 20230721
  Serious: Yes (Hospitalization, Other)
  Sender: FDA-Public Use
  Company Number: US-PFIZER INC-2020209650

PATIENT
  Age: 74 Year
  Sex: Female

DRUGS (3)
  1. XELJANZ XR [Suspect]
     Active Substance: TOFACITINIB CITRATE
     Indication: Rheumatoid arthritis
     Dosage: 11 MG, DAILY
     Route: 048
     Dates: start: 2020
  2. XELJANZ XR [Suspect]
     Active Substance: TOFACITINIB CITRATE
     Dosage: 11 MG, DAILY
     Route: 048
     Dates: start: 202101
  3. XELJANZ XR [Suspect]
     Active Substance: TOFACITINIB CITRATE
     Dosage: 11 MG, DAILY
     Route: 048
     Dates: start: 202201

REACTIONS (12)
  - Cerebrovascular accident [Not Recovered/Not Resolved]
  - Myocardial infarction [Recovering/Resolving]
  - Aphasia [Not Recovered/Not Resolved]
  - Memory impairment [Not Recovered/Not Resolved]
  - Speech disorder [Not Recovered/Not Resolved]
  - Pneumonitis [Unknown]
  - Bronchitis [Recovering/Resolving]
  - Dyspnoea [Recovering/Resolving]
  - Pain in extremity [Unknown]
  - Gait disturbance [Unknown]
  - Pain [Unknown]
  - Loss of personal independence in daily activities [Unknown]

NARRATIVE: CASE EVENT DATE: 20220101
